FAERS Safety Report 16887674 (Version 2)
Quarter: 2019Q4

REPORT INFORMATION
  Report Type: Spontaneous
  Country: DE (occurrence: DE)
  Receive Date: 20191005
  Receipt Date: 20191105
  Transmission Date: 20200122
  Serious: Yes (Other)
  Sender: FDA-Public Use
  Company Number: DE-AUROBINDO-AUR-APL-2019-064351

PATIENT
  Sex: Female
  Weight: 65 kg

DRUGS (6)
  1. METAMIZOLE [Suspect]
     Active Substance: METAMIZOLE
     Dosage: 500 MG (UP TO 8 TIMES DAILY)
     Route: 065
  2. LETROZOLE. [Suspect]
     Active Substance: LETROZOLE
     Indication: BREAST CANCER METASTATIC
     Dosage: 2.5 MILLIGRAM, ONCE A DAY
     Route: 048
     Dates: start: 20190618
  3. KISQALI [Suspect]
     Active Substance: RIBOCICLIB
     Indication: BREAST CANCER METASTATIC
     Dosage: 200 MILLIGRAM, ONCE A DAY
     Route: 048
     Dates: start: 20190618
  4. METAMIZOLE [Suspect]
     Active Substance: METAMIZOLE
     Indication: PAIN
     Dosage: 2 DOSAGE FORM (1-2 TABLETS) (ON DEMAND)
     Route: 065
  5. ZOMETA [Concomitant]
     Active Substance: ZOLEDRONIC ACID
     Indication: BREAST CANCER
     Dosage: UNK
     Route: 042
  6. L-THYROX [Suspect]
     Active Substance: LEVOTHYROXINE SODIUM
     Indication: HYPOTHYROIDISM
     Dosage: 125 MICROGRAM
     Route: 048

REACTIONS (5)
  - Myalgia [Recovering/Resolving]
  - Polyarthritis [Unknown]
  - Polymyalgia rheumatica [Unknown]
  - Arthralgia [Recovering/Resolving]
  - Osteoarthritis [Recovering/Resolving]
